FAERS Safety Report 13454670 (Version 1)
Quarter: 2017Q2

REPORT INFORMATION
  Report Type: Spontaneous
  Country: US (occurrence: US)
  Receive Date: 20170418
  Receipt Date: 20170418
  Transmission Date: 20170830
  Serious: No
  Sender: FDA-Public Use
  Company Number: US-ALLERGAN-1700568US

PATIENT
  Age: 40 Year
  Sex: Female

DRUGS (2)
  1. LATISSE [Suspect]
     Active Substance: BIMATOPROST
     Indication: OCULAR HYPERAEMIA
     Dosage: 2 GTT, QHS
     Route: 061
     Dates: start: 20161110, end: 20161230
  2. LATISSE [Suspect]
     Active Substance: BIMATOPROST
     Indication: EYE PRURITUS

REACTIONS (4)
  - Eye irritation [Unknown]
  - Erythema of eyelid [Recovered/Resolved]
  - Off label use [Unknown]
  - Eye pruritus [Recovered/Resolved]

NARRATIVE: CASE EVENT DATE: 20161110
